FAERS Safety Report 16949935 (Version 2)
Quarter: 2019Q4

REPORT INFORMATION
  Report Type: Report from Study
  Country: US (occurrence: US)
  Receive Date: 20191023
  Receipt Date: 20191121
  Transmission Date: 20200122
  Serious: Yes (Hospitalization, Other)
  Sender: FDA-Public Use
  Company Number: US-ROCHE-2436796

PATIENT
  Sex: Male

DRUGS (2)
  1. OBINUTUZUMAB. [Suspect]
     Active Substance: OBINUTUZUMAB
     Indication: HAIRY CELL LEUKAEMIA
     Dosage: DATE OF LAST DOSE PRIOR TO THE DOSE ON 29/OCT/2018
     Route: 042
     Dates: start: 20181022
  2. VEMURAFENIB. [Suspect]
     Active Substance: VEMURAFENIB
     Indication: HAIRY CELL LEUKAEMIA
     Dosage: DATE OF LAST DOSE PRIOR TO THE DOSE ON 29/OCT/2018.
     Route: 048
     Dates: start: 20181022

REACTIONS (4)
  - Pyrexia [Recovered/Resolved]
  - Chills [Recovering/Resolving]
  - Rash maculo-papular [Recovered/Resolved]
  - Febrile neutropenia [Recovered/Resolved]

NARRATIVE: CASE EVENT DATE: 20181101
